FAERS Safety Report 7879266-1 (Version None)
Quarter: 2011Q4

REPORT INFORMATION
  Report Type: 
  Country: None (occurrence: None)
  Receive Date: 20111101
  Receipt Date: 20111020
  Transmission Date: 20120403
  Serious: Yes (Other)
  Sender: FDA-Public Use
  Company Number: US-ASTRAZENECA-2011SE63653

PATIENT
  Age: 50 Year
  Sex: Female
  Weight: 55.8 kg

DRUGS (5)
  1. SEROQUEL [Suspect]
     Indication: DEPRESSION
     Route: 048
     Dates: start: 20080101
  2. SEROQUEL [Suspect]
     Indication: INSOMNIA
     Route: 048
     Dates: start: 20080101
  3. THYROID MEDICATION [Concomitant]
  4. ACIFEX [Concomitant]
  5. SEROQUEL [Suspect]
     Indication: PANIC ATTACK
     Route: 048
     Dates: start: 20080101

REACTIONS (13)
  - LIMB INJURY [None]
  - ANXIETY [None]
  - MENTAL DISORDER [None]
  - INSOMNIA [None]
  - PAIN IN EXTREMITY [None]
  - DRUG DOSE OMISSION [None]
  - DEPRESSION [None]
  - WEIGHT FLUCTUATION [None]
  - ROAD TRAFFIC ACCIDENT [None]
  - HAND FRACTURE [None]
  - BACK PAIN [None]
  - JOINT DISLOCATION [None]
  - OFF LABEL USE [None]
